FAERS Safety Report 8022358-7 (Version None)
Quarter: 2011Q4

REPORT INFORMATION
  Report Type: 
  Country: None (occurrence: None)
  Receive Date: 20111229
  Receipt Date: 20111223
  Transmission Date: 20120403
  Serious: Yes (Hospitalization, Disabling)
  Sender: FDA-Public Use
  Company Number: AUR-APL-2011-06280

PATIENT
  Age: 75 Year
  Sex: Female
  Weight: 55 kg

DRUGS (6)
  1. GABAPENTIN [Suspect]
     Indication: NEUROPATHY PERIPHERAL
     Dosage: 1800 MG (600 MG,3 IN 1 D),ORAL
     Route: 048
     Dates: start: 20110801, end: 20110804
  2. DURAGESIC-100 [Concomitant]
  3. OMEPRAZOLE [Concomitant]
  4. MARCUMAR (PHENPROOOUMON) [Concomitant]
  5. METOPROLOL TARTRATE [Concomitant]
  6. AMITRIPTYLINE HCL [Concomitant]

REACTIONS (1)
  - RHABDOMYOLYSIS [None]
